FAERS Safety Report 4699677-5 (Version None)
Quarter: 2005Q2

REPORT INFORMATION
  Report Type: 
  Country: None (occurrence: None)
  Receive Date: 20050623
  Receipt Date: 20050614
  Transmission Date: 20051028
  Serious: Yes (Hospitalization)
  Sender: FDA-Public Use
  Company Number: 2005-05-2077

PATIENT
  Age: 62 Year
  Sex: Male

DRUGS (5)
  1. PEG-INTRON [Suspect]
     Indication: HEPATITIS C
     Dosage: 80 MCG QWK SUBCUTANEOUS
     Route: 058
     Dates: start: 20050325
  2. REBETOL [Suspect]
     Indication: HEPATITIS C
     Dosage: 800 MG QD ORAL
     Route: 048
     Dates: start: 20050325
  3. PANTOZOL (PATOPRAZOLE) [Concomitant]
  4. LIORESAL [Concomitant]
  5. LEXOTAN [Concomitant]

REACTIONS (2)
  - HEAT STROKE [None]
  - TRANSIENT ISCHAEMIC ATTACK [None]
